FAERS Safety Report 8491411-6 (Version None)
Quarter: 2012Q3

REPORT INFORMATION
  Report Type: 
  Country: None (occurrence: None)
  Receive Date: 20120706
  Receipt Date: 20120626
  Transmission Date: 20120928
  Serious: Yes (Other)
  Sender: FDA-Public Use
  Company Number: FR-JNJFOC-20120607604

PATIENT
  Sex: Female

DRUGS (4)
  1. REMICADE [Suspect]
     Dosage: FOURTH INFUSION
     Route: 042
     Dates: start: 20120401
  2. REMICADE [Suspect]
     Dosage: FOURTH INFUSION
     Route: 042
     Dates: start: 20120401
  3. REMICADE [Suspect]
     Indication: INTESTINAL RESECTION
     Route: 042
     Dates: start: 20120101
  4. REMICADE [Suspect]
     Indication: CROHN'S DISEASE
     Route: 042
     Dates: start: 20120101

REACTIONS (3)
  - CEREBROVASCULAR SPASM [None]
  - FATIGUE [None]
  - DISORIENTATION [None]
